FAERS Safety Report 5672390-3 (Version None)
Quarter: 2008Q1

REPORT INFORMATION
  Report Type: 
  Country: None (occurrence: None)
  Receive Date: 20080319
  Receipt Date: 20080313
  Transmission Date: 20080703
  Serious: Yes (Other)
  Sender: FDA-Public Use
  Company Number: PHHY2008AU02570

PATIENT
  Age: 77 Year
  Sex: Female

DRUGS (9)
  1. ZADITEN [Suspect]
     Indication: EYE ALLERGY
     Dosage: TWICE A DAY
     Dates: start: 20080303, end: 20080303
  2. XALATAN [Concomitant]
     Dosage: T DROP BE AT NIGHT
     Dates: start: 20071101
  3. TIMOPTIC [Concomitant]
     Dosage: T DROP BE MORNING
  4. ATENOLOL [Concomitant]
     Indication: CARDIAC DISORDER
     Dosage: HALF TABLET IN MORNING
     Dates: start: 20060901
  5. LIPEX [Concomitant]
     Dosage: 10 MG
  6. PERINDOPRIL [Concomitant]
     Indication: CARDIAC DISORDER
     Dosage: 5 MG EVERY MORNING
  7. CELEBREX [Concomitant]
     Dosage: 200 MG EVERY ALTERNATE DAY
  8. ZANTAC [Concomitant]
     Dosage: 150 MG BEFORE DINNER
  9. METAMUCIL [Concomitant]
     Dates: start: 20040101

REACTIONS (2)
  - PALPITATIONS [None]
  - SLEEP DISORDER [None]
